FAERS Safety Report 23027444 (Version 1)
Quarter: 2023Q4

REPORT INFORMATION
  Report Type: Spontaneous
  Country: SE (occurrence: SE)
  Receive Date: 20231004
  Receipt Date: 20231004
  Transmission Date: 20240109
  Serious: Yes (Other)
  Sender: FDA-Public Use
  Company Number: None

PATIENT
  Age: 84 Year
  Sex: Female

DRUGS (3)
  1. METOPROLOL [Suspect]
     Active Substance: METOPROLOL
     Indication: Essential hypertension
     Dosage: 100 MILLIGRAM, BID (12 HOURS)
     Route: 048
     Dates: start: 20180809
  2. AMLODIPINE BESYLATE [Concomitant]
     Active Substance: AMLODIPINE BESYLATE
     Dosage: UNK
     Route: 065
     Dates: end: 20230905
  3. FUROSEMIDE [Concomitant]
     Active Substance: FUROSEMIDE
     Dosage: BID (2 + 1) 12 HOURS
     Route: 065

REACTIONS (1)
  - Hallucination, visual [Not Recovered/Not Resolved]
